FAERS Safety Report 9088121 (Version 1)
Quarter: 2013Q1

REPORT INFORMATION
  Report Type: Report from Study
  Country: US (occurrence: US)
  Receive Date: 20130201
  Receipt Date: 20130201
  Transmission Date: 20140127
  Serious: No
  Sender: FDA-Public Use
  Company Number: US-ABBOTT-12P-163-1024881-00

PATIENT
  Sex: Female
  Weight: 83.08 kg

DRUGS (4)
  1. HUMIRA [Suspect]
     Indication: PSORIASIS
     Dates: end: 201212
  2. OXYCODONE [Concomitant]
     Indication: PAIN
  3. TUMS [Concomitant]
     Indication: DYSPEPSIA
  4. TYLENOL [Concomitant]
     Indication: PAIN

REACTIONS (1)
  - Psoriasis [Not Recovered/Not Resolved]
